FAERS Safety Report 17351854 (Version 4)
Quarter: 2020Q3

REPORT INFORMATION
  Report Type: Spontaneous
  Country: IN (occurrence: IN)
  Receive Date: 20200130
  Receipt Date: 20200818
  Transmission Date: 20201102
  Serious: Yes (Death, Hospitalization)
  Sender: FDA-Public Use
  Company Number: IN-CELGENEUS-IND-20200107603

PATIENT
  Age: 59 Year
  Sex: Male

DRUGS (22)
  1. GRANISETRON [Concomitant]
     Active Substance: GRANISETRON
     Dosage: 3 MILLIGRAM
     Route: 042
     Dates: start: 20191230, end: 20191230
  2. PARACETAMOL [Concomitant]
     Active Substance: ACETAMINOPHEN
     Indication: BACK PAIN
     Route: 065
     Dates: start: 20200113, end: 20200113
  3. NORMAL SALINE [Concomitant]
     Active Substance: SODIUM CHLORIDE
     Indication: SUPPORTIVE CARE
     Route: 042
     Dates: start: 20200113, end: 20200113
  4. ACETYLSALICYLIC ACID [Concomitant]
     Active Substance: ASPIRIN
     Indication: PRODUCT USED FOR UNKNOWN INDICATION
     Route: 065
  5. GRANISETRON [Concomitant]
     Active Substance: GRANISETRON
     Dosage: 3 MILLIGRAM
     Route: 042
     Dates: start: 20200106, end: 20200106
  6. DOMPERIDON AND PANTOPRAZOLE [Concomitant]
     Indication: PREMEDICATION
     Dosage: 80 MILLIGRAM
     Route: 048
     Dates: start: 20191224, end: 20191228
  7. ABRAXANE [Suspect]
     Active Substance: PACLITAXEL
     Indication: NON-SMALL CELL LUNG CANCER STAGE IV
     Dosage: 171 MILLIGRAM
     Route: 041
     Dates: start: 20191223, end: 20191223
  8. LACTATED RINGERS SOLUTION [Concomitant]
     Active Substance: CALCIUM CHLORIDE\POTASSIUM CHLORIDE\SODIUM CHLORIDE\SODIUM LACTATE
     Indication: SUPPORTIVE CARE
     Route: 042
     Dates: start: 20200113, end: 20200113
  9. ONDANSETRON [Concomitant]
     Active Substance: ONDANSETRON
     Dosage: 8 MILLIGRAM
     Route: 048
     Dates: start: 20191230, end: 20191230
  10. DOMPERIDON AND PANTOPRAZOLE [Concomitant]
     Dosage: 80 MILLIGRAM
     Route: 048
     Dates: start: 20200107, end: 20200107
  11. CARBOPLATIN. [Suspect]
     Active Substance: CARBOPLATIN
     Indication: NON-SMALL CELL LUNG CANCER STAGE IV
     Dosage: 414 MILLIGRAM
     Route: 042
     Dates: start: 20191223, end: 20191223
  12. KESOL [BUDESONIDE] [Concomitant]
     Active Substance: BUDESONIDE
     Indication: HYPOKALAEMIA
     Route: 042
     Dates: start: 20200113, end: 20200113
  13. ONDANSETRON [Concomitant]
     Active Substance: ONDANSETRON
     Dosage: 8 MILLIGRAM
     Route: 048
     Dates: start: 20200107, end: 20200107
  14. ABRAXANE [Suspect]
     Active Substance: PACLITAXEL
     Dosage: 171 MILLIGRAM
     Route: 041
     Dates: start: 20191230, end: 20191230
  15. RAZO [Concomitant]
     Indication: PROPHYLAXIS OF NAUSEA AND VOMITING
     Dosage: 40 MILLIGRAM
     Route: 048
     Dates: start: 20200113, end: 20200118
  16. GRANISETRON [Concomitant]
     Active Substance: GRANISETRON
     Indication: PREMEDICATION
     Dosage: 3 MILLIGRAM
     Route: 042
     Dates: start: 20191223, end: 20191223
  17. ONDANSETRON [Concomitant]
     Active Substance: ONDANSETRON
     Indication: PROPHYLAXIS OF NAUSEA AND VOMITING
     Dosage: 8 MILLIGRAM
     Route: 048
     Dates: start: 20191224, end: 20191228
  18. DOMPERIDON AND PANTOPRAZOLE [Concomitant]
     Dosage: 80 MILLIGRAM
     Route: 048
     Dates: start: 20191230, end: 20191230
  19. DURVALUMAB. [Suspect]
     Active Substance: DURVALUMAB
     Indication: NON-SMALL CELL LUNG CANCER STAGE IV
     Dosage: 1500 MILLIGRAM
     Route: 042
     Dates: start: 20191223, end: 20191223
  20. TAPAL [Concomitant]
     Indication: BACK PAIN
     Dosage: 100 MILLIGRAM
     Route: 048
     Dates: start: 20200113, end: 20200118
  21. SODIUM LACTATE. [Concomitant]
     Active Substance: SODIUM LACTATE
     Indication: PRODUCT USED FOR UNKNOWN INDICATION
     Route: 042
     Dates: start: 20200113, end: 20200113
  22. ABRAXANE [Suspect]
     Active Substance: PACLITAXEL
     Dosage: 171 MILLIGRAM
     Route: 041
     Dates: start: 20200106, end: 20200106

REACTIONS (3)
  - Tachycardia [Not Recovered/Not Resolved]
  - Non-small cell lung cancer [Fatal]
  - Pancreatitis acute [Not Recovered/Not Resolved]

NARRATIVE: CASE EVENT DATE: 20200116
